FAERS Safety Report 6505619-X (Version None)
Quarter: 2009Q4

REPORT INFORMATION
  Report Type: 
  Country: None (occurrence: None)
  Receive Date: 20091217
  Receipt Date: 20091217
  Transmission Date: 20100525
  Serious: Yes (Other)
  Sender: FDA-Public Use
  Company Number: None

PATIENT
  Age: 40 Year
  Sex: Female
  Weight: 81.6475 kg

DRUGS (1)
  1. YAZ [Suspect]
     Indication: PREMENSTRUAL SYNDROME
     Dosage: 1 TABLET DAILY PO
     Route: 048
     Dates: start: 20090605, end: 20091105

REACTIONS (5)
  - ABDOMINAL DISTENSION [None]
  - BLOOD POTASSIUM INCREASED [None]
  - FLANK PAIN [None]
  - NEPHROLITHIASIS [None]
  - WEIGHT INCREASED [None]
